FAERS Safety Report 10080287 (Version 1)
Quarter: 2014Q2

REPORT INFORMATION
  Report Type: Spontaneous
  Country: US (occurrence: US)
  Receive Date: 20140415
  Receipt Date: 20140415
  Transmission Date: 20141212
  Serious: Yes (Other)
  Sender: FDA-Public Use
  Company Number: US-GILEAD-2014-0099567

PATIENT
  Sex: Female

DRUGS (21)
  1. LETAIRIS [Suspect]
     Indication: PULMONARY ARTERIAL HYPERTENSION
     Dosage: 5 MG, UNK
     Route: 048
     Dates: start: 20130404, end: 20140410
  2. TORSEMIDE [Concomitant]
  3. COZAAR [Concomitant]
  4. TRAZODONE [Concomitant]
  5. WELCHOL [Concomitant]
  6. PROMETRIUM                         /00110701/ [Concomitant]
  7. SYSTANE [Concomitant]
  8. L-THYROXINE                        /00068001/ [Concomitant]
  9. ESTROPIPATE [Concomitant]
  10. FENTANYL [Concomitant]
  11. CENTRUM                            /02217401/ [Concomitant]
  12. VITAMIN C                          /00008001/ [Concomitant]
  13. VITAMIN D                          /00107901/ [Concomitant]
  14. LORTAB                             /00607101/ [Concomitant]
  15. XANAX [Concomitant]
  16. FLAXSEED OIL [Concomitant]
  17. CALCIUM [Concomitant]
  18. CITALOPRAM [Concomitant]
  19. OMEPRAZOLE [Concomitant]
  20. LOSARTAN/HYDROCHLOROTHIAZIDE [Concomitant]
  21. HYDROCORTISONE [Concomitant]

REACTIONS (1)
  - Drug ineffective [Unknown]
